FAERS Safety Report 19976779 (Version 1)
Quarter: 2021Q4

REPORT INFORMATION
  Report Type: Spontaneous
  Country: US (occurrence: US)
  Receive Date: 20211020
  Receipt Date: 20211020
  Transmission Date: 20220303
  Serious: No
  Sender: FDA-Public Use
  Company Number: US-ALLERGAN-2125913US

PATIENT
  Sex: Female

DRUGS (2)
  1. LINZESS [Suspect]
     Active Substance: LINACLOTIDE
     Indication: Constipation
     Dosage: 145 ?G, QAM, WITH MEAL
     Route: 048
     Dates: start: 20210224
  2. AMITRIPTYLINE [Concomitant]
     Active Substance: AMITRIPTYLINE
     Indication: Migraine prophylaxis
     Dosage: 100 MG, QHS
     Route: 048

REACTIONS (4)
  - Inappropriate schedule of product administration [Unknown]
  - Therapy interrupted [Unknown]
  - Diarrhoea [Recovered/Resolved]
  - Therapeutic response decreased [Unknown]

NARRATIVE: CASE EVENT DATE: 20200101
